FAERS Safety Report 8087318-9 (Version None)
Quarter: 2012Q1

REPORT INFORMATION
  Report Type: 
  Country: None (occurrence: None)
  Receive Date: 20120128
  Receipt Date: 20110516
  Transmission Date: 20120608
  Serious: No
  Sender: FDA-Public Use
  Company Number: US-ABBOTT-11P-163-0726067-00

PATIENT
  Age: 53 Year
  Sex: Female

DRUGS (11)
  1. ACIDOPHILUS [Concomitant]
     Indication: PROBIOTIC THERAPY
     Dosage: PROBIOTIC OCCASIONALLY
  2. METFFORMIN HYDROCHLORIDE [Concomitant]
     Indication: DIABETES MELLITUS
  3. HUMIRA [Suspect]
     Indication: PSORIASIS
     Dates: start: 20110301
  4. CALCIUM PLUS [Concomitant]
     Indication: MINERAL SUPPLEMENTATION
  5. GLIMEPIRIDE [Concomitant]
     Indication: DIABETES MELLITUS
  6. LOSARTAN POTASSIUM [Concomitant]
     Indication: HYPERTENSION
  7. MULTIPLE VITAMINS [Concomitant]
     Indication: VITAMIN SUPPLEMENTATION
  8. HYDROCHLOROTHIAZIDE [Concomitant]
     Indication: HYPERTENSION
  9. GINGER [Concomitant]
     Indication: PHYTOTHERAPY
     Dosage: OCCASIONALLY
  10. VITAMIN D [Concomitant]
     Indication: VITAMIN SUPPLEMENTATION
     Dosage: OCCASIONALLY
  11. VITAMIN B COMPLEX CAP [Concomitant]
     Indication: VITAMIN SUPPLEMENTATION

REACTIONS (2)
  - OEDEMA PERIPHERAL [None]
  - PRURITUS [None]
